FAERS Safety Report 5646281-8 (Version None)
Quarter: 2008Q1

REPORT INFORMATION
  Report Type: 
  Country: None (occurrence: None)
  Receive Date: 20080301
  Receipt Date: 20080221
  Transmission Date: 20080703
  Serious: Yes (Hospitalization)
  Sender: FDA-Public Use
  Company Number: JP-JNJFOC-20070904151

PATIENT
  Sex: Female
  Weight: 20.4 kg

DRUGS (7)
  1. REMICADE [Suspect]
     Route: 042
  2. REMICADE [Suspect]
     Indication: CHRONIC GRAFT VERSUS HOST DISEASE
     Route: 042
  3. NEORAL [Concomitant]
     Indication: CHRONIC GRAFT VERSUS HOST DISEASE
     Route: 048
  4. ONEALFA [Concomitant]
     Indication: OSTEOPOROSIS PROPHYLAXIS
     Dosage: DOSE= 0.25 RG
     Route: 048
  5. FAMOTIDINE [Concomitant]
     Indication: GASTRITIS
     Route: 048
  6. BAKTAR [Concomitant]
     Indication: INFECTION PROPHYLAXIS
     Dosage: DOSE= 1 TABLET DAILY
     Route: 048
  7. ALDACTONE [Concomitant]
     Indication: PERICARDITIS
     Route: 048

REACTIONS (2)
  - ARTHRALGIA [None]
  - PYREXIA [None]
